FAERS Safety Report 26205524 (Version 1)
Quarter: 2025Q4

REPORT INFORMATION
  Report Type: Spontaneous
  Country: US (occurrence: US)
  Receive Date: 20251228
  Receipt Date: 20251228
  Transmission Date: 20260118
  Serious: No
  Sender: PIRAMAL
  Company Number: US-PCCINC-2025-PPL-000694

PATIENT

DRUGS (1)
  1. GLYCOPYRROLATE [Suspect]
     Active Substance: GLYCOPYRROLATE
     Indication: Surgery
     Dosage: 0.2MG PER INJECTABLE PRE-LOADED SYRINGE OF 4 UNITS

REACTIONS (1)
  - Product administration error [Unknown]
